FAERS Safety Report 10407557 (Version 1)
Quarter: 2014Q1

REPORT INFORMATION
  Report Type: Spontaneous
  Country: US (occurrence: None)
  Receive Date: 20130225
  Receipt Date: 20130225
  Transmission Date: 20141002
  Serious: No
  Sender: FDA-Public Use
  Company Number: 369380N

PATIENT
  Age: 52 Year
  Sex: Female

DRUGS (4)
  1. VICTOZA (LIRAGLUTIDE) SOLUTION FOR INJECTION, 6MG/ML [Suspect]
     Indication: TYPE 2 DIABETES MELLITUS
     Dosage: 1.8, SUBCUTANEOUS ONGOING?
     Route: 058
  2. LANTUS (INSULIN GLARGINE) [Concomitant]
  3. COUMADIN /00014802/(WARFARIN SODIUM) [Concomitant]
  4. SIMVASTATIN [Concomitant]

REACTIONS (1)
  - Blood glucose increased [None]
